FAERS Safety Report 23845314 (Version 1)
Quarter: 2024Q2

REPORT INFORMATION
  Report Type: Spontaneous
  Country: US (occurrence: None)
  Receive Date: 20240511
  Receipt Date: 20240511
  Transmission Date: 20240716
  Serious: No
  Sender: FDA-Public Use
  Company Number: 2024A106427

PATIENT
  Sex: Female

DRUGS (1)
  1. AIRSUPRA [Suspect]
     Active Substance: ALBUTEROL SULFATE\BUDESONIDE
     Dosage: UNKNOWN
     Route: 055

REACTIONS (6)
  - Swelling face [Unknown]
  - Adverse event [Unknown]
  - Product dose omission issue [Unknown]
  - Lymphadenopathy [Unknown]
  - Headache [Unknown]
  - Oropharyngeal pain [Unknown]
